FAERS Safety Report 5331117-5 (Version None)
Quarter: 2007Q2

REPORT INFORMATION
  Report Type: 
  Country: None (occurrence: None)
  Receive Date: 20070517
  Receipt Date: 20070502
  Transmission Date: 20071010
  Serious: Yes (Life-Threatening, Hospitalization)
  Sender: FDA-Public Use
  Company Number: 2007RR-06583

PATIENT
  Age: 49 Year
  Sex: Female

DRUGS (5)
  1. PARACETAMOL FAMILY(ACETAMINOPHEN/PARACETAMOL) TABLET, 500MG [Suspect]
     Indication: MEDICATION ERROR
     Dosage: 10000 MG, ORAL
     Route: 048
  2. CO-PROXAMOL(CO-PROXAMOL) TABLET [Suspect]
     Indication: MEDICATION ERROR
     Dosage: 6 DF, ORAL
     Route: 048
  3. RISPERIDONE [Suspect]
     Indication: MEDICATION ERROR
  4. DEXTROPROPOXYPHENE(DEXTROPROPOXYPHENE) [Suspect]
     Indication: MEDICATION ERROR
     Dosage: 2 G
  5. SERTRALINE [Suspect]
     Indication: MEDICATION ERROR

REACTIONS (12)
  - ALANINE AMINOTRANSFERASE INCREASED [None]
  - BLOOD ALKALINE PHOSPHATASE INCREASED [None]
  - BRAIN OEDEMA [None]
  - CSF GLUCOSE DECREASED [None]
  - GAMMA-GLUTAMYLTRANSFERASE INCREASED [None]
  - GENERAL PHYSICAL HEALTH DETERIORATION [None]
  - HAEMODIALYSIS [None]
  - HEPATIC ENCEPHALOPATHY [None]
  - INCORRECT DOSE ADMINISTERED [None]
  - MULTIPLE DRUG OVERDOSE INTENTIONAL [None]
  - OLIGURIA [None]
  - PULMONARY OEDEMA [None]
